FAERS Safety Report 12547435 (Version 1)
Quarter: 2016Q3

REPORT INFORMATION
  Report Type: Spontaneous
  Country: US (occurrence: US)
  Receive Date: 20160711
  Receipt Date: 20160711
  Transmission Date: 20161109
  Serious: No
  Sender: FDA-Public Use
  Company Number: GXBR2016US002118

PATIENT
  Sex: Female
  Weight: 66.67 kg

DRUGS (18)
  1. CPT-11 [Concomitant]
     Active Substance: IRINOTECAN
     Indication: RECTAL CANCER
     Dosage: 90 MG, UNK
     Route: 065
     Dates: start: 20151222
  2. AVASTIN [Concomitant]
     Active Substance: BEVACIZUMAB
     Dosage: 346 MG, UNK
     Route: 065
     Dates: start: 20160119
  3. 5 FU [Concomitant]
     Active Substance: FLUOROURACIL
     Dosage: 450 MG, UNK
     Route: 065
     Dates: start: 20160119
  4. AVASTIN [Concomitant]
     Active Substance: BEVACIZUMAB
     Indication: RECTAL CANCER
     Dosage: 346 MG, UNK
     Route: 065
     Dates: start: 20151202
  5. AVASTIN [Concomitant]
     Active Substance: BEVACIZUMAB
     Dosage: 346 MG, UNK
     Route: 065
     Dates: start: 20160202
  6. ZARXIO [Suspect]
     Active Substance: FILGRASTIM-SNDZ
     Indication: PRODUCT USED FOR UNKNOWN INDICATION
     Dosage: 300 UG, UNK
     Route: 041
     Dates: start: 20151224
  7. CPT-11 [Concomitant]
     Active Substance: IRINOTECAN
     Dosage: 90 MG, UNK
     Route: 065
     Dates: start: 20160105
  8. 5 FU [Concomitant]
     Active Substance: FLUOROURACIL
     Indication: RECTAL CANCER
     Dosage: 450 MG, UNK
     Route: 065
     Dates: start: 20151222
  9. 5 FU [Concomitant]
     Active Substance: FLUOROURACIL
     Dosage: 450 UNK, UNK
     Dates: start: 20160202
  10. CPT-11 [Concomitant]
     Active Substance: IRINOTECAN
     Dosage: 90 MG, UNK
     Route: 065
     Dates: start: 20160119
  11. ZARXIO [Suspect]
     Active Substance: FILGRASTIM-SNDZ
     Dosage: 300 UG, UNK
     Route: 041
     Dates: start: 20160120, end: 20160122
  12. 5 FU [Concomitant]
     Active Substance: FLUOROURACIL
     Dosage: 450 MG, UNK
     Route: 065
     Dates: start: 20160126
  13. CPT-11 [Concomitant]
     Active Substance: IRINOTECAN
     Dosage: 90 MG, UNK
     Route: 065
     Dates: start: 20160126
  14. CPT-11 [Concomitant]
     Active Substance: IRINOTECAN
     Dosage: 90 MG, UNK
     Route: 065
     Dates: start: 20160202
  15. ZARXIO [Suspect]
     Active Substance: FILGRASTIM-SNDZ
     Dosage: 180 UG, UNK
     Route: 041
     Dates: start: 20160127, end: 20160128
  16. 5 FU [Concomitant]
     Active Substance: FLUOROURACIL
     Dosage: 450 MG, UNK
     Route: 065
     Dates: start: 20160112
  17. CPT-11 [Concomitant]
     Active Substance: IRINOTECAN
     Dosage: 90 MG, UNK
     Route: 065
     Dates: start: 20160112
  18. 5 FU [Concomitant]
     Active Substance: FLUOROURACIL
     Dosage: 450 MG, UNK
     Route: 065
     Dates: start: 20160105

REACTIONS (1)
  - Rash [Recovered/Resolved]
